FAERS Safety Report 7764720-3 (Version None)
Quarter: 2011Q3

REPORT INFORMATION
  Report Type: 
  Country: None (occurrence: None)
  Receive Date: 20110916
  Receipt Date: 20110906
  Transmission Date: 20111222
  Serious: Yes (Congenital Anomaly, Other)
  Sender: FDA-Public Use
  Company Number: TPG2008A01334

PATIENT
  Sex: Female

DRUGS (3)
  1. ACTOS [Suspect]
     Indication: TYPE 2 DIABETES MELLITUS
     Dosage: 30 MG
     Route: 064
     Dates: start: 20070410, end: 20080326
  2. BLOPRESS (CANDESARTAN CILEXETIL) [Suspect]
     Indication: HYPERTENSION
     Dosage: 16 MG
     Route: 064
     Dates: start: 20071220, end: 20080326
  3. METFORMIN HYDROCHLORIDE [Concomitant]

REACTIONS (4)
  - FOETAL GROWTH RESTRICTION [None]
  - HYPOGLYCAEMIA NEONATAL [None]
  - NEONATAL HYPOXIA [None]
  - MATERNAL DRUGS AFFECTING FOETUS [None]
